FAERS Safety Report 5641786-8 (Version None)
Quarter: 2008Q1

REPORT INFORMATION
  Report Type: 
  Country: None (occurrence: None)
  Receive Date: 20080227
  Receipt Date: 20080220
  Transmission Date: 20080703
  Serious: Yes (Other)
  Sender: FDA-Public Use
  Company Number: PHBS2008BR02000

PATIENT
  Age: 52 Year
  Sex: Female
  Weight: 80 kg

DRUGS (1)
  1. CODATEN [Suspect]
     Indication: PAIN
     Dosage: 50 MG/DAY
     Route: 048
     Dates: start: 20080208

REACTIONS (4)
  - HEADACHE [None]
  - LABYRINTHITIS [None]
  - RETCHING [None]
  - VOMITING [None]
